FAERS Safety Report 23772291 (Version 1)
Quarter: 2024Q2

REPORT INFORMATION
  Report Type: Spontaneous
  Country: US (occurrence: US)
  Receive Date: 20240423
  Receipt Date: 20240423
  Transmission Date: 20240716
  Serious: Yes (Hospitalization)
  Sender: FDA-Public Use
  Company Number: US-GLANDPHARMA-US-2024GLNSPO00018

PATIENT
  Age: 75 Year
  Sex: Male

DRUGS (1)
  1. MILRINONE LACTATE [Suspect]
     Active Substance: MILRINONE LACTATE
     Indication: Cardiac failure
     Dosage: IN 5% DEXTROSE INJECTION
     Route: 042
     Dates: start: 202311

REACTIONS (5)
  - Weight increased [Unknown]
  - Lethargy [Unknown]
  - Catheter removal [Unknown]
  - Orthostatic hypotension [Recovering/Resolving]
  - Nausea [Unknown]
